FAERS Safety Report 8289866-5 (Version None)
Quarter: 2012Q2

REPORT INFORMATION
  Report Type: 
  Country: None (occurrence: None)
  Receive Date: 20120417
  Receipt Date: 20120413
  Transmission Date: 20120825
  Serious: No
  Sender: FDA-Public Use
  Company Number: US-PFIZER INC-2012092900

PATIENT
  Sex: Male
  Weight: 91 kg

DRUGS (3)
  1. PROTONIX [Suspect]
     Indication: SMALL INTESTINE ULCER
     Dosage: 20 MG, 1X/DAY
     Route: 048
  2. PROTONIX [Suspect]
     Indication: GASTRIC ULCER
     Dosage: 40 MG, 1X/DAY
     Route: 048
     Dates: start: 20050101
  3. ASCORBIC ACID [Concomitant]
     Dosage: UNK

REACTIONS (8)
  - CALCIUM DEFICIENCY [None]
  - SPINAL COLUMN INJURY [None]
  - DENTAL CARIES [None]
  - BONE DISORDER [None]
  - ARTHROPATHY [None]
  - SPINAL DISORDER [None]
  - ADVERSE DRUG REACTION [None]
  - PAIN [None]
